FAERS Safety Report 18463485 (Version 1)
Quarter: 2020Q4

REPORT INFORMATION
  Report Type: Spontaneous
  Country: CN (occurrence: CN)
  Receive Date: 20201104
  Receipt Date: 20201104
  Transmission Date: 20210114
  Serious: Yes (Hospitalization, Other)
  Sender: FDA-Public Use
  Company Number: CN-ELI_LILLY_AND_COMPANY-CN202011000431

PATIENT
  Age: 63 Year
  Sex: Male

DRUGS (4)
  1. ALIMTA [Suspect]
     Active Substance: PEMETREXED DISODIUM
     Indication: LUNG NEOPLASM MALIGNANT
     Dosage: 800 MG, DAILY
     Route: 041
     Dates: start: 20201017, end: 20201017
  2. SODIUM CHLORIDE. [Concomitant]
     Active Substance: SODIUM CHLORIDE
     Indication: MEDICATION DILUTION
     Dosage: 100 ML, DAILY
     Route: 041
     Dates: start: 20201017, end: 20201017
  3. SODIUM CHLORIDE. [Concomitant]
     Active Substance: SODIUM CHLORIDE
     Dosage: 200 ML, DAILY
     Route: 041
     Dates: start: 20201017, end: 20201017
  4. AVASTIN [Suspect]
     Active Substance: BEVACIZUMAB
     Indication: LUNG NEOPLASM MALIGNANT
     Dosage: 700 MG, DAILY
     Route: 041
     Dates: start: 20201017, end: 20201017

REACTIONS (10)
  - Blood pressure increased [Recovering/Resolving]
  - Drug-induced liver injury [Recovering/Resolving]
  - Asthenia [Recovering/Resolving]
  - Myelosuppression [Recovering/Resolving]
  - Agranulocytosis [Recovering/Resolving]
  - Palpitations [Recovering/Resolving]
  - Off label use [Unknown]
  - Fatigue [Recovering/Resolving]
  - Infection [Recovering/Resolving]
  - Rash maculo-papular [Recovering/Resolving]

NARRATIVE: CASE EVENT DATE: 20201017
